FAERS Safety Report 10185855 (Version 1)
Quarter: 2014Q2

REPORT INFORMATION
  Report Type: Report from Study
  Country: US (occurrence: US)
  Receive Date: 20140521
  Receipt Date: 20140521
  Transmission Date: 20141212
  Serious: Yes (Hospitalization)
  Sender: FDA-Public Use
  Company Number: US-ACTELION-A-NJ2014-98932

PATIENT
  Age: 77 Year
  Sex: Male

DRUGS (3)
  1. MACITENTAN [Suspect]
     Indication: PULMONARY ARTERIAL HYPERTENSION
     Dosage: 10 MG, UNK
     Route: 048
     Dates: start: 20140312
  2. COUMADIN [Concomitant]
  3. ADCIRCA [Concomitant]

REACTIONS (1)
  - Rectal haemorrhage [Unknown]
